FAERS Safety Report 14328328 (Version 1)
Quarter: 2017Q4

REPORT INFORMATION
  Report Type: Spontaneous
  Country: US (occurrence: US)
  Receive Date: 20171227
  Receipt Date: 20171227
  Transmission Date: 20180321
  Serious: Yes (Other)
  Sender: FDA-Public Use
  Company Number: None

PATIENT
  Age: 62 Year
  Sex: Female
  Weight: 112.5 kg

DRUGS (9)
  1. CONTRAVE [Suspect]
     Active Substance: BUPROPION HYDROCHLORIDE\NALTREXONE HYDROCHLORIDE
     Indication: WEIGHT DECREASED
     Dosage: ?          QUANTITY:120 TABLET(S);?
     Route: 048
  2. METFORMIN [Concomitant]
     Active Substance: METFORMIN HYDROCHLORIDE
  3. BLOOD PRESSURE MEDS [Concomitant]
  4. FENOFIBRATE. [Concomitant]
     Active Substance: FENOFIBRATE
  5. THEOPHYLLINE [Concomitant]
     Active Substance: THEOPHYLLINE ANHYDROUS
  6. INHALERS FOR ASTHMA [Concomitant]
  7. ZYRTEC [Concomitant]
     Active Substance: CETIRIZINE HYDROCHLORIDE
  8. SYNTHROID [Concomitant]
     Active Substance: LEVOTHYROXINE SODIUM
  9. VITAMINS [Concomitant]
     Active Substance: VITAMINS

REACTIONS (6)
  - Weight decreased [None]
  - Therapy cessation [None]
  - Alopecia [None]
  - Therapy change [None]
  - Nausea [None]
  - Vomiting [None]

NARRATIVE: CASE EVENT DATE: 20170921
